FAERS Safety Report 8188017-5 (Version None)
Quarter: 2012Q1

REPORT INFORMATION
  Report Type: 
  Country: None (occurrence: None)
  Receive Date: 20120306
  Receipt Date: 20120221
  Transmission Date: 20120608
  Serious: Yes (Hospitalization)
  Sender: FDA-Public Use
  Company Number: CA-ARROW GEN-2012-03054

PATIENT
  Age: 36 Year
  Sex: Female

DRUGS (3)
  1. TOPIRAMATE [Suspect]
     Indication: EPILEPSY
     Dosage: DOSE INCREASE TO 100MG 1 MONTH PRIOR TO HOSPITALIZATION
     Route: 048
  2. TOPIRAMATE [Suspect]
     Indication: SCHIZOAFFECTIVE DISORDER
     Dosage: HOSPITAL DAY 2 AND 3
     Route: 048
  3. TOPIRAMATE [Suspect]
     Indication: DEPRESSION
     Dosage: HOSPITAL DAY 4 AND 5, DISCONTINUED HOSPITAL DAY 6
     Route: 048

REACTIONS (7)
  - COORDINATION ABNORMAL [None]
  - DYSARTHRIA [None]
  - HEADACHE [None]
  - COGNITIVE DISORDER [None]
  - GAIT DISTURBANCE [None]
  - DYSPHORIA [None]
  - HEMIPARESIS [None]
